FAERS Safety Report 8037310-5 (Version None)
Quarter: 2012Q1

REPORT INFORMATION
  Report Type: 
  Country: None (occurrence: None)
  Receive Date: 20120111
  Receipt Date: 20120103
  Transmission Date: 20120608
  Serious: Yes (Hospitalization, Disabling)
  Sender: FDA-Public Use
  Company Number: US-MERCK-1106USA01826

PATIENT
  Age: 64 Year
  Sex: Female
  Weight: 78 kg

DRUGS (11)
  1. FOSAMAX [Suspect]
     Route: 048
     Dates: start: 20050301, end: 20070601
  2. DIDRONEL [Concomitant]
     Indication: OSTEOPOROSIS PROPHYLAXIS
     Route: 065
  3. FOSAMAX [Suspect]
     Route: 048
     Dates: start: 19980101, end: 20050301
  4. BONIVA [Concomitant]
     Indication: OSTEOPOROSIS PROPHYLAXIS
     Route: 048
     Dates: start: 20070606, end: 20080401
  5. FOSAMAX [Suspect]
     Route: 048
     Dates: start: 20050301, end: 20070601
  6. BONIVA [Concomitant]
     Indication: OSTEOPOROSIS
     Route: 048
     Dates: start: 20070606, end: 20080401
  7. RECLAST [Concomitant]
     Indication: OSTEOPOROSIS
     Route: 041
     Dates: start: 20080422, end: 20090427
  8. FOSAMAX [Suspect]
     Route: 048
     Dates: start: 19980101, end: 20050301
  9. RECLAST [Concomitant]
     Indication: OSTEOPOROSIS PROPHYLAXIS
     Route: 041
     Dates: start: 20080422, end: 20090427
  10. FOSAMAX [Suspect]
     Indication: OSTEOPOROSIS
     Route: 048
     Dates: start: 19980101, end: 20070823
  11. FOSAMAX [Suspect]
     Indication: OSTEOPOROSIS PROPHYLAXIS
     Route: 048
     Dates: start: 19980101, end: 20070823

REACTIONS (14)
  - FEMUR FRACTURE [None]
  - GASTROINTESTINAL STROMAL TUMOUR [None]
  - HYPERTENSION [None]
  - HYPERLIPIDAEMIA [None]
  - CONSTIPATION [None]
  - TENDON DISORDER [None]
  - MYOFASCIAL PAIN SYNDROME [None]
  - WEIGHT INCREASED [None]
  - BACK PAIN [None]
  - HIATUS HERNIA [None]
  - FRACTURE DELAYED UNION [None]
  - GASTROOESOPHAGEAL REFLUX DISEASE [None]
  - MIGRAINE [None]
  - FOOT FRACTURE [None]
